FAERS Safety Report 6783305-9 (Version None)
Quarter: 2010Q2

REPORT INFORMATION
  Report Type: 
  Country: None (occurrence: None)
  Receive Date: 20100617
  Receipt Date: 20080207
  Transmission Date: 20101027
  Serious: Yes (Hospitalization, Other)
  Sender: FDA-Public Use
  Company Number: LEO-2010-00534

PATIENT
  Age: 27 Year
  Sex: Female
  Weight: 55 kg

DRUGS (2)
  1. INNOHEP [Suspect]
     Indication: CARDIAC VALVE DISEASE
     Dosage: 10000 IU (10000 IU,1 IN 1 D); 14000 IU (14000 IU,1 IN 1 D)
     Dates: start: 20031115, end: 20040416
  2. INNOHEP [Suspect]
     Indication: CARDIAC VALVE DISEASE
     Dosage: 10000 IU (10000 IU,1 IN 1 D); 14000 IU (14000 IU,1 IN 1 D)
     Dates: start: 20040416, end: 20040602

REACTIONS (7)
  - CAESAREAN SECTION [None]
  - DRUG EXPOSURE DURING PREGNANCY [None]
  - DYSPNOEA [None]
  - INJECTION SITE HAEMATOMA [None]
  - PALPITATIONS [None]
  - PREMATURE LABOUR [None]
  - UTERINE CONTRACTIONS ABNORMAL [None]
